FAERS Safety Report 18600309 (Version 1)
Quarter: 2020Q4

REPORT INFORMATION
  Report Type: Spontaneous
  Country: US (occurrence: US)
  Receive Date: 20201210
  Receipt Date: 20201210
  Transmission Date: 20210114
  Serious: No
  Sender: FDA-Public Use
  Company Number: None

PATIENT
  Age: 43 Year
  Sex: Male
  Weight: 137.7 kg

DRUGS (10)
  1. KETOCONAZOLE 2 % TOPICAL CREAM [Concomitant]
     Dates: start: 20181203
  2. LISINOPRIL. [Concomitant]
     Active Substance: LISINOPRIL
     Dates: start: 20200309
  3. DEXAMETHASONE 1 MG [Concomitant]
     Dates: start: 20200309
  4. ATORVASTATIN [Suspect]
     Active Substance: ATORVASTATIN
     Indication: HYPERLIPIDAEMIA
     Dates: start: 20191011, end: 20200309
  5. HYDROCHLOROTHIAZIDE 12.5 MG [Concomitant]
     Active Substance: HYDROCHLOROTHIAZIDE
     Dates: start: 20200309
  6. RISPERIDONE 4MG [Concomitant]
     Active Substance: RISPERIDONE
     Dates: start: 20190213
  7. LAMICTAL [Concomitant]
     Active Substance: LAMOTRIGINE
     Dates: start: 20200306
  8. HYDROCORTISONE 1 % TOPICAL OINTMENT [Concomitant]
     Dates: start: 20200309
  9. GLUCAGON EMERGENCY KIT [Concomitant]
     Active Substance: GLUCAGON
     Dates: start: 20191230
  10. HUMULIN R U-500 [Concomitant]
     Active Substance: INSULIN HUMAN
     Dates: start: 20190213

REACTIONS (1)
  - Abdominal discomfort [None]

NARRATIVE: CASE EVENT DATE: 20200309
